FAERS Safety Report 7486168-1 (Version None)
Quarter: 2011Q2

REPORT INFORMATION
  Report Type: 
  Country: None (occurrence: None)
  Receive Date: 20110517
  Receipt Date: 20110406
  Transmission Date: 20111010
  Serious: Yes (Hospitalization)
  Sender: FDA-Public Use
  Company Number: US-BAYER-201036622NA

PATIENT
  Age: 26 Year
  Sex: Female
  Weight: 58.957 kg

DRUGS (1)
  1. YASMIN [Suspect]
     Indication: ACNE
     Route: 048
     Dates: start: 20051201, end: 20070301

REACTIONS (4)
  - PANCREATIC DISORDER [None]
  - PANCREATITIS [None]
  - GALLBLADDER DISORDER [None]
  - CHOLELITHIASIS [None]
